FAERS Safety Report 6836286-3 (Version None)
Quarter: 2010Q3

REPORT INFORMATION
  Report Type: 
  Country: None (occurrence: None)
  Receive Date: 20100713
  Receipt Date: 20100329
  Transmission Date: 20110219
  Serious: No
  Sender: FDA-Public Use
  Company Number: US-TYCO HEALTHCARE/MALLINCKRODT-T201001009

PATIENT

DRUGS (1)
  1. OXYCODONE HCL [Suspect]
     Dosage: 8X5MG QD

REACTIONS (3)
  - FLATULENCE [None]
  - NOSE DEFORMITY [None]
  - PAROSMIA [None]
